FAERS Safety Report 4743702-X (Version None)
Quarter: 2005Q3

REPORT INFORMATION
  Report Type: 
  Country: None (occurrence: None)
  Receive Date: 20050809
  Receipt Date: 20050801
  Transmission Date: 20060218
  Serious: Yes (Life-Threatening, Hospitalization, Disabling)
  Sender: FDA-Public Use
  Company Number: GBWYE835515JUL05

PATIENT
  Age: 48 Year
  Sex: Female

DRUGS (3)
  1. EFFEXOR [Suspect]
     Indication: BIPOLAR I DISORDER
     Dosage: 300MG ORAL
     Route: 048
     Dates: start: 20040101, end: 20050501
  2. FUROSEMIDE [Concomitant]
  3. TRIFLUOPERAZINE (TRIFLUOPERAZINE) [Concomitant]

REACTIONS (3)
  - BLOOD PRESSURE INCREASED [None]
  - CONGESTIVE CARDIOMYOPATHY [None]
  - HYPERTROPHIC CARDIOMYOPATHY [None]
